FAERS Safety Report 6408967-7 (Version None)
Quarter: 2009Q4

REPORT INFORMATION
  Report Type: 
  Country: None (occurrence: None)
  Receive Date: 20091021
  Receipt Date: 20091014
  Transmission Date: 20100525
  Serious: Yes (Hospitalization)
  Sender: FDA-Public Use
  Company Number: CH-WYE-G04622409

PATIENT
  Age: 56 Year
  Sex: Male

DRUGS (1)
  1. TAZOBAC [Suspect]
     Indication: BACTERIAL INFECTION
     Dosage: 4.5 G, FREQUENCY UNKNOWN
     Route: 051
     Dates: start: 20090831, end: 20090904

REACTIONS (2)
  - BLOOD CREATINE PHOSPHOKINASE INCREASED [None]
  - CHILLS [None]
